FAERS Safety Report 9159696 (Version 1)
Quarter: 2013Q1

REPORT INFORMATION
  Report Type: Spontaneous
  Country: US (occurrence: US)
  Receive Date: 20130313
  Receipt Date: 20130313
  Transmission Date: 20140127
  Serious: No
  Sender: FDA-Public Use
  Company Number: US-PFIZER INC-2013084640

PATIENT
  Age: 53 Year
  Sex: Female
  Weight: 74.83 kg

DRUGS (3)
  1. CHANTIX [Suspect]
     Indication: SMOKING CESSATION THERAPY
     Dosage: UNK
     Route: 048
     Dates: start: 20130302
  2. MICARDIS HCT [Concomitant]
     Indication: HYPERTENSION
     Dosage: 80/20 MG DAILY
  3. ZANTAC [Concomitant]
     Indication: HYPERSENSITIVITY
     Dosage: UNK, DAILY

REACTIONS (1)
  - Abdominal pain upper [Not Recovered/Not Resolved]
